FAERS Safety Report 4742728-X (Version None)
Quarter: 2005Q3

REPORT INFORMATION
  Report Type: 
  Country: None (occurrence: None)
  Receive Date: 20050811
  Receipt Date: 20050511
  Transmission Date: 20060218
  Serious: Yes (Other)
  Sender: FDA-Public Use
  Company Number: US-MERCK-0505USA01393

PATIENT
  Age: 77 Year
  Sex: Female
  Weight: 52 kg

DRUGS (5)
  1. COZAAR [Suspect]
     Route: 048
     Dates: end: 20050101
  2. COZAAR [Suspect]
     Route: 048
     Dates: start: 20050401
  3. TICLID [Suspect]
     Route: 065
     Dates: end: 20050101
  4. TICLID [Suspect]
     Route: 065
     Dates: start: 20050101
  5. ATENOLOL [Concomitant]
     Route: 065

REACTIONS (2)
  - CORONARY ARTERY DISEASE [None]
  - HOT FLUSH [None]
